FAERS Safety Report 20047806 (Version 1)
Quarter: 2021Q4

REPORT INFORMATION
  Report Type: Spontaneous
  Country: CN (occurrence: CN)
  Receive Date: 20211109
  Receipt Date: 20211109
  Transmission Date: 20220303
  Serious: Yes (Hospitalization, Other)
  Sender: FDA-Public Use
  Company Number: CN-Accord-244479

PATIENT
  Age: 66 Year
  Sex: Female

DRUGS (3)
  1. TACROLIMUS [Suspect]
     Active Substance: TACROLIMUS
     Indication: Chronic kidney disease
     Route: 048
     Dates: start: 20191115
  2. PREDNISONE [Concomitant]
     Active Substance: PREDNISONE
     Indication: Chronic kidney disease
     Dosage: 5 MG REDUCED EVERY HALF MONTH
     Dates: start: 20191211
  3. CYCLOPHOSPHAMIDE [Concomitant]
     Active Substance: CYCLOPHOSPHAMIDE
     Indication: Chronic kidney disease
     Dates: start: 20191211

REACTIONS (1)
  - Nocardiosis [Recovering/Resolving]
